FAERS Safety Report 6161487-X (Version None)
Quarter: 2009Q2

REPORT INFORMATION
  Report Type: 
  Country: None (occurrence: None)
  Receive Date: 20090421
  Receipt Date: 20090407
  Transmission Date: 20091009
  Serious: Yes (Hospitalization)
  Sender: FDA-Public Use
  Company Number: PHHY2009JP05889

PATIENT
  Age: 63 Year
  Sex: Male

DRUGS (4)
  1. DIOVAN [Suspect]
     Indication: HYPERTENSION
     Dosage: 80 MG, QD
     Route: 048
     Dates: end: 20090203
  2. DIOVAN [Suspect]
     Dosage: 40 MG, QD
     Route: 048
     Dates: start: 20090204
  3. AMLODIPINE [Concomitant]
     Dosage: UNK
     Route: 048
     Dates: start: 20090204
  4. ALSIODOL [Concomitant]
     Dosage: UNK
     Route: 048
     Dates: start: 20090204

REACTIONS (2)
  - COUGH [None]
  - FRACTURE [None]
